FAERS Safety Report 12897555 (Version 2)
Quarter: 2016Q4

REPORT INFORMATION
  Report Type: Spontaneous
  Country: JP (occurrence: JP)
  Receive Date: 20161031
  Receipt Date: 20161114
  Transmission Date: 20170207
  Serious: Yes (Hospitalization)
  Sender: FDA-Public Use
  Company Number: JP-BAYER-2016-202289

PATIENT
  Age: 83 Year
  Sex: Male

DRUGS (1)
  1. ACETYLSALICYLIC ACID({=100 MG) [Suspect]
     Active Substance: ASPIRIN
     Indication: INTRA-CEREBRAL ANEURYSM OPERATION
     Dosage: UNK
     Route: 048

REACTIONS (3)
  - Portal venous gas [None]
  - Pneumatosis intestinalis [None]
  - Gastrointestinal mucosal disorder [None]
